APPROVED DRUG PRODUCT: SPIRONOLACTONE W/ HYDROCHLOROTHIAZIDE
Active Ingredient: HYDROCHLOROTHIAZIDE; SPIRONOLACTONE
Strength: 25MG;25MG
Dosage Form/Route: TABLET;ORAL
Application: A087004 | Product #002
Applicant: IVAX PHARMACEUTICALS INC
Approved: May 24, 1982 | RLD: No | RS: No | Type: DISCN